FAERS Safety Report 14266863 (Version 1)
Quarter: 2017Q4

REPORT INFORMATION
  Report Type: Spontaneous
  Country: CN (occurrence: CN)
  Receive Date: 20171211
  Receipt Date: 20171211
  Transmission Date: 20180321
  Serious: Yes (Life-Threatening, Hospitalization)
  Sender: FDA-Public Use
  Company Number: CN-ABBVIE-17P-035-2187085-00

PATIENT
  Age: 61 Year
  Sex: Male

DRUGS (4)
  1. BEI QING XING [Suspect]
     Active Substance: OXIRACETAM
     Indication: CEREBRAL HAEMORRHAGE
     Route: 041
     Dates: start: 20171004, end: 20171017
  2. OU DI MEI [Concomitant]
     Indication: CEREBRAL HAEMORRHAGE
     Route: 041
     Dates: start: 20171004, end: 20171017
  3. DEPAKINE CHRONO [Suspect]
     Active Substance: VALPROATE SODIUM
     Indication: EPILEPSY
     Dosage: EXTENDED RELEASE
     Route: 048
     Dates: start: 20171004, end: 20171017
  4. AI SEN AO [Suspect]
     Active Substance: ACEGLUTAMIDE
     Indication: CEREBRAL HAEMORRHAGE
     Route: 041
     Dates: start: 20171004, end: 20171017

REACTIONS (1)
  - Dermatitis exfoliative [Recovering/Resolving]

NARRATIVE: CASE EVENT DATE: 20171009
